FAERS Safety Report 8937011 (Version 2)
Quarter: 2012Q4

REPORT INFORMATION
  Report Type: 
  Country: US (occurrence: US)
  Receive Date: 20121130
  Receipt Date: 20121217
  Transmission Date: 20130627
  Serious: Yes (Other)
  Sender: FDA-Public Use
  Company Number: US-AMGEN-USASP2012076494

PATIENT
  Age: 61 Year
  Sex: Female
  Weight: 97.51 kg

DRUGS (4)
  1. ENBREL [Suspect]
     Indication: RHEUMATOID ARTHRITIS
     Dosage: 50 mg, qwk
     Route: 058
     Dates: start: 20120619, end: 20121112
  2. METHOTREXATE [Concomitant]
     Dosage: UNK
     Dates: start: 20120619, end: 20121112
  3. PLAQUENIL                          /00072602/ [Concomitant]
     Dosage: UNK
     Dates: start: 20120619, end: 20121112
  4. MOLIN [Concomitant]
     Dosage: UNK
     Dates: start: 20120619, end: 20121112

REACTIONS (9)
  - Rectocele [Recovered/Resolved]
  - Impaired healing [Not Recovered/Not Resolved]
  - Post procedural discharge [Not Recovered/Not Resolved]
  - Post procedural haemorrhage [Not Recovered/Not Resolved]
  - Asthenia [Not Recovered/Not Resolved]
  - Fatigue [Not Recovered/Not Resolved]
  - Arthritis [Not Recovered/Not Resolved]
  - Musculoskeletal stiffness [Not Recovered/Not Resolved]
  - Upper respiratory tract infection [Unknown]
